FAERS Safety Report 21669314 (Version 1)
Quarter: 2022Q4

REPORT INFORMATION
  Report Type: Spontaneous
  Country: QA (occurrence: IN)
  Receive Date: 20221201
  Receipt Date: 20221201
  Transmission Date: 20230113
  Serious: Yes (Death, Hospitalization, Other)
  Sender: FDA-Public Use
  Company Number: QA-PFIZER INC-PV202200111121

PATIENT
  Age: 1 Month
  Sex: Female
  Weight: 2.2 kg

DRUGS (16)
  1. MEROPENEM [Suspect]
     Active Substance: MEROPENEM
     Indication: Multisystem inflammatory syndrome
     Dosage: UNK
     Route: 042
  2. MEROPENEM [Suspect]
     Active Substance: MEROPENEM
     Indication: COVID-19
  3. METHYLPREDNISOLONE SODIUM SUCCINATE [Suspect]
     Active Substance: METHYLPREDNISOLONE SODIUM SUCCINATE
     Indication: Multisystem inflammatory syndrome
     Dosage: UNK
     Route: 042
  4. METHYLPREDNISOLONE SODIUM SUCCINATE [Suspect]
     Active Substance: METHYLPREDNISOLONE SODIUM SUCCINATE
     Indication: COVID-19
  5. DOBUTAMINE [Suspect]
     Active Substance: DOBUTAMINE HYDROCHLORIDE
     Indication: Multisystem inflammatory syndrome
     Dosage: UNK
     Route: 042
  6. DOBUTAMINE [Suspect]
     Active Substance: DOBUTAMINE HYDROCHLORIDE
     Indication: COVID-19
  7. AMIKACIN [Suspect]
     Active Substance: AMIKACIN
     Indication: Multisystem inflammatory syndrome
     Dosage: UNK
     Route: 042
  8. AMIKACIN [Suspect]
     Active Substance: AMIKACIN
     Indication: COVID-19
  9. NOREPINEPHRINE [Suspect]
     Active Substance: NOREPINEPHRINE
     Indication: Multisystem inflammatory syndrome
     Dosage: UNK
     Route: 042
  10. NOREPINEPHRINE [Suspect]
     Active Substance: NOREPINEPHRINE
     Indication: COVID-19
  11. MILRINONE [Suspect]
     Active Substance: MILRINONE
     Indication: Multisystem inflammatory syndrome
     Dosage: UNK
     Route: 042
  12. MILRINONE [Suspect]
     Active Substance: MILRINONE
     Indication: COVID-19
  13. VASOPRESSIN [Suspect]
     Active Substance: VASOPRESSIN
     Indication: Multisystem inflammatory syndrome
     Dosage: UNK
     Route: 042
  14. VASOPRESSIN [Suspect]
     Active Substance: VASOPRESSIN
     Indication: COVID-19
  15. HUMAN IMMUNOGLOBULIN G [Suspect]
     Active Substance: HUMAN IMMUNOGLOBULIN G
     Indication: Multisystem inflammatory syndrome
     Dosage: 2G/KG, DAILY
     Route: 042
  16. HUMAN IMMUNOGLOBULIN G [Suspect]
     Active Substance: HUMAN IMMUNOGLOBULIN G
     Indication: COVID-19

REACTIONS (4)
  - Respiratory distress [Fatal]
  - Shock [Fatal]
  - Hypoglycaemia [Fatal]
  - Off label use [Unknown]
